FAERS Safety Report 16726164 (Version 2)
Quarter: 2019Q3

REPORT INFORMATION
  Report Type: Spontaneous
  Country: US (occurrence: US)
  Receive Date: 20190821
  Receipt Date: 20190911
  Transmission Date: 20191005
  Serious: Yes (Hospitalization)
  Sender: FDA-Public Use
  Company Number: US-ROCHE-2376914

PATIENT
  Sex: Female

DRUGS (19)
  1. SPIRIVA [Concomitant]
     Active Substance: TIOTROPIUM BROMIDE MONOHYDRATE
  2. FLUTICASONE. [Concomitant]
     Active Substance: FLUTICASONE
  3. PREDNISONE. [Concomitant]
     Active Substance: PREDNISONE
  4. RANITIDINE. [Concomitant]
     Active Substance: RANITIDINE
  5. SYMBICORT [Concomitant]
     Active Substance: BUDESONIDE\FORMOTEROL FUMARATE DIHYDRATE
  6. ASMANEX [Concomitant]
     Active Substance: MOMETASONE FUROATE
  7. DIOVAN [Concomitant]
     Active Substance: VALSARTAN
  8. TRAZODONE [Concomitant]
     Active Substance: TRAZODONE HYDROCHLORIDE
  9. XOLAIR [Suspect]
     Active Substance: OMALIZUMAB
     Indication: ASTHMA
     Route: 058
     Dates: start: 20150922
  10. OSELTAMIVIR [Concomitant]
     Active Substance: OSELTAMIVIR
  11. VIT D [Concomitant]
     Active Substance: VITAMIN D NOS
  12. ALBUTEROL [SALBUTAMOL] [Concomitant]
     Active Substance: ALBUTEROL
  13. FOLIC ACID. [Concomitant]
     Active Substance: FOLIC ACID
  14. ENBREL [Suspect]
     Active Substance: ETANERCEPT
     Indication: RHEUMATOID ARTHRITIS
     Route: 058
     Dates: start: 20190125
  15. SINGULAIR [Concomitant]
     Active Substance: MONTELUKAST SODIUM
  16. PAXIL [Concomitant]
     Active Substance: PAROXETINE HYDROCHLORIDE
  17. PROTONIX [Concomitant]
     Active Substance: PANTOPRAZOLE SODIUM
  18. BUPROPION. [Concomitant]
     Active Substance: BUPROPION
  19. METHOTREXATE. [Concomitant]
     Active Substance: METHOTREXATE

REACTIONS (3)
  - Swelling [Unknown]
  - Cellulitis [Unknown]
  - Weight increased [Unknown]
